FAERS Safety Report 8077087-0 (Version None)
Quarter: 2012Q1

REPORT INFORMATION
  Report Type: 
  Country: None (occurrence: None)
  Receive Date: 20120127
  Receipt Date: 20120118
  Transmission Date: 20120608
  Serious: Yes (Other)
  Sender: FDA-Public Use
  Company Number: AU-EISAI INC-E3810-05249-SPO-AU

PATIENT
  Sex: Female

DRUGS (2)
  1. RABEPRAZOLE SODIUM [Suspect]
     Dosage: 20 MG OR 40 MG
  2. NEXIUM [Suspect]
     Dosage: UNKNOWN

REACTIONS (1)
  - OESOPHAGEAL POLYP [None]
